FAERS Safety Report 4325747-7 (Version None)
Quarter: 2004Q1

REPORT INFORMATION
  Report Type: 
  Country: None (occurrence: None)
  Receive Date: 20040323
  Receipt Date: 20040310
  Transmission Date: 20041129
  Serious: Yes (Hospitalization)
  Sender: FDA-Public Use
  Company Number: JP-JNJFOC-20031006523

PATIENT
  Age: 53 Year
  Sex: Male
  Weight: 60 kg

DRUGS (31)
  1. REMICADE [Suspect]
     Indication: RHEUMATOID ARTHRITIS
     Dosage: 3 MG/KG, 1 IN 1 AS NECESSARY, INTRAVENOUS DRIP
     Route: 041
     Dates: start: 20030820, end: 20030820
  2. REMICADE [Suspect]
     Indication: RHEUMATOID ARTHRITIS
     Dosage: 3 MG/KG, 1 IN 1 AS NECESSARY, INTRAVENOUS DRIP
     Route: 041
     Dates: start: 20030903, end: 20030903
  3. REMICADE [Suspect]
     Indication: RHEUMATOID ARTHRITIS
     Dosage: 3 MG/KG, 1 IN 1 AS NECESSARY, INTRAVENOUS DRIP
     Route: 041
     Dates: start: 20031001, end: 20031001
  4. METHOTREXATE [Suspect]
     Indication: RHEUMATOID ARTHRITIS
     Dosage: SEE IMAGE
     Route: 048
     Dates: start: 19981001, end: 20000601
  5. METHOTREXATE [Suspect]
     Indication: RHEUMATOID ARTHRITIS
     Dosage: SEE IMAGE
     Route: 048
     Dates: start: 20000601, end: 20001001
  6. METHOTREXATE [Suspect]
     Indication: RHEUMATOID ARTHRITIS
     Dosage: SEE IMAGE
     Route: 048
     Dates: start: 20001001, end: 20030219
  7. METHOTREXATE [Suspect]
     Indication: RHEUMATOID ARTHRITIS
     Dosage: SEE IMAGE
     Route: 048
     Dates: start: 20030730, end: 20030812
  8. METHOTREXATE [Suspect]
     Indication: RHEUMATOID ARTHRITIS
     Dosage: SEE IMAGE
     Route: 048
     Dates: start: 20030813, end: 20030913
  9. METHOTREXATE [Suspect]
     Indication: RHEUMATOID ARTHRITIS
     Dosage: SEE IMAGE
     Route: 048
     Dates: start: 20030914, end: 20031025
  10. PREDNISOLONE [Suspect]
     Indication: RHEUMATOID ARTHRITIS
     Dosage: SEE IMAGE
     Route: 048
     Dates: start: 20031029, end: 20031103
  11. PREDNISOLONE [Suspect]
     Indication: RHEUMATOID ARTHRITIS
     Dosage: SEE IMAGE
     Route: 048
     Dates: start: 19980101
  12. PREDNISOLONE [Suspect]
     Indication: RHEUMATOID ARTHRITIS
     Dosage: SEE IMAGE
     Route: 048
     Dates: start: 20031104
  13. ISONIAZID [Suspect]
     Indication: PROPHYLAXIS
     Dosage: 100 MG, 4 IN 1 DAY, ORAL
     Route: 048
     Dates: start: 20030910, end: 20031008
  14. ISONIAZID [Suspect]
     Indication: PROPHYLAXIS
     Dosage: 100 MG, 4 IN 1 DAY, ORAL
     Route: 048
     Dates: start: 20031009, end: 20031026
  15. MOBIC  (TABLETS) MELOXICAM [Concomitant]
  16. FOLIAMIN (TABLETS) FOLIC ACID [Concomitant]
  17. PYDOXAL (TABLETS) PYRIDOXAL PHOSPHATE [Concomitant]
  18. NORVASC (AMLODIPINE BESILATE) TABLETS [Concomitant]
  19. OMEPRAL (OMEPRAZOLE) TABLETS [Concomitant]
  20. ACTONEL (RISEDRONATE SODIUM) TABLETS [Concomitant]
  21. SELBEX (TEPRENONE) POWDER [Concomitant]
  22. ASPELIN (ALL OTHER THERAPEUTIC PRODUCTS) TABLETS [Concomitant]
  23. GLAKAY (MENATETRENONE) TABLETS [Concomitant]
  24. PROMAC (NITROFURANTOIN) POWDER [Concomitant]
  25. MAGNESIUM OXIDE (MAGNESIUM OXIDE) [Concomitant]
  26. SEREVENT (SALMETEROL XINAFOATE) INHALATION [Concomitant]
  27. AZEPTIN (AZELASTINE) [Concomitant]
  28. NIPOLAZIN (MEQUITAZINE) [Concomitant]
  29. MUCOSOLATE (AMBROXOL HYDROCHLORIDE) [Concomitant]
  30. DEXCHLORPHENIRAMINE MALEATE [Concomitant]
  31. ASVERIN (TIPEPIDINE HIBENZATE) TABLETS [Concomitant]

REACTIONS (3)
  - DYSPNOEA [None]
  - HERPES ZOSTER [None]
  - HYPOXIA [None]
